FAERS Safety Report 7473471-4 (Version None)
Quarter: 2011Q2

REPORT INFORMATION
  Report Type: 
  Country: None (occurrence: None)
  Receive Date: 20110511
  Receipt Date: 20100701
  Transmission Date: 20111010
  Serious: No
  Sender: FDA-Public Use
  Company Number: US-SANOFI-AVENTIS-2010SA038506

PATIENT
  Sex: Male

DRUGS (3)
  1. LANTUS [Suspect]
     Dates: start: 20100101
  2. LANTUS [Suspect]
     Dates: start: 20100101
  3. APIDRA [Suspect]
     Dosage: DOSE:8 UNIT(S)
     Route: 058
     Dates: start: 20100101

REACTIONS (3)
  - BLOOD GLUCOSE INCREASED [None]
  - MUSCLE SPASMS [None]
  - MALAISE [None]
